FAERS Safety Report 4439562-7 (Version None)
Quarter: 2004Q3

REPORT INFORMATION
  Report Type: 
  Country: None (occurrence: None)
  Receive Date: 20040902
  Receipt Date: 20040825
  Transmission Date: 20050211
  Serious: Yes (Hospitalization, Other)
  Sender: FDA-Public Use
  Company Number: US-JNJFOC-20040808880

PATIENT
  Sex: Male
  Weight: 95.26 kg

DRUGS (4)
  1. REMICADE [Suspect]
     Route: 042
  2. REMICADE [Suspect]
     Indication: RHEUMATOID ARTHRITIS
     Route: 042
  3. METHOTREXATE [Concomitant]
     Dosage: 6 PILLS
  4. FOLIC ACID [Concomitant]

REACTIONS (5)
  - LUNG DISORDER [None]
  - PAIN [None]
  - PNEUMONIA [None]
  - PYREXIA [None]
  - WEIGHT DECREASED [None]
